FAERS Safety Report 22088443 (Version 1)
Quarter: 2023Q1

REPORT INFORMATION
  Report Type: Spontaneous
  Country: US (occurrence: US)
  Receive Date: 20230313
  Receipt Date: 20230313
  Transmission Date: 20230418
  Serious: No
  Sender: FDA-Public Use
  Company Number: US-PHARMAESSENTIA CORPORATION-US-2023-PEC-001005

PATIENT

DRUGS (7)
  1. BESREMI [Suspect]
     Active Substance: ROPEGINTERFERON ALFA-2B-NJFT
     Indication: Polycythaemia vera
     Dosage: 150 MCG, Q2W
     Route: 058
     Dates: start: 20221116
  2. ASPIRIN [Concomitant]
     Active Substance: ASPIRIN
     Indication: Product used for unknown indication
     Route: 048
  3. AMLODIPINA BESILAT [Concomitant]
     Indication: Product used for unknown indication
     Dosage: 10
     Route: 048
  4. SINGULAIR [Concomitant]
     Active Substance: MONTELUKAST SODIUM
     Indication: Product used for unknown indication
     Dosage: 10 MG
     Route: 048
  5. ATORVASTATIN CALCIUM [Concomitant]
     Active Substance: ATORVASTATIN CALCIUM
     Indication: Product used for unknown indication
     Dosage: 20
     Route: 048
  6. MAGNESIUM [Concomitant]
     Active Substance: MAGNESIUM
     Indication: Product used for unknown indication
     Dosage: 250 MG
     Route: 048
  7. VITAMIN E-400 [Concomitant]
     Indication: Product used for unknown indication
     Dosage: 400 UNIT
     Route: 048

REACTIONS (2)
  - Diarrhoea [Recovered/Resolved]
  - Flatulence [Unknown]

NARRATIVE: CASE EVENT DATE: 20230111
